FAERS Safety Report 7961885-5 (Version None)
Quarter: 2011Q4

REPORT INFORMATION
  Report Type: 
  Country: None (occurrence: None)
  Receive Date: 20111207
  Receipt Date: 20111202
  Transmission Date: 20120403
  Serious: Yes (Death, Hospitalization)
  Sender: FDA-Public Use
  Company Number: DE-ROCHE-1018905

PATIENT
  Sex: Female
  Weight: 85 kg

DRUGS (3)
  1. DEXAMETHASONE [Concomitant]
     Route: 042
  2. AVASTIN [Suspect]
     Indication: BREAST CANCER METASTATIC
     Route: 065
  3. TAXOL [Concomitant]
     Route: 042

REACTIONS (2)
  - DIVERTICULITIS [None]
  - HAEMORRHAGE [None]
